FAERS Safety Report 16389859 (Version 1)
Quarter: 2019Q2

REPORT INFORMATION
  Report Type: Spontaneous
  Country: US (occurrence: US)
  Receive Date: 20190604
  Receipt Date: 20190604
  Transmission Date: 20190711
  Serious: Yes (Other)
  Sender: FDA-Public Use
  Company Number: US-BAYER-2019-105252

PATIENT
  Sex: Male

DRUGS (2)
  1. EOVIST [Suspect]
     Active Substance: GADOXETATE DISODIUM
     Indication: NUCLEAR MAGNETIC RESONANCE IMAGING
     Dosage: UNK
     Dates: start: 20171025, end: 20171025
  2. EOVIST [Suspect]
     Active Substance: GADOXETATE DISODIUM
     Indication: ANGIOGRAM
     Dosage: UNK, ONCE
     Dates: start: 20180713, end: 20180713

REACTIONS (7)
  - Injury [None]
  - Contrast media deposition [None]
  - Nontherapeutic agent urine positive [None]
  - Quality of life decreased [None]
  - Anhedonia [None]
  - Anxiety [None]
  - Pain [None]

NARRATIVE: CASE EVENT DATE: 20190121
